FAERS Safety Report 7371113-X (Version None)
Quarter: 2011Q1

REPORT INFORMATION
  Report Type: 
  Country: None (occurrence: None)
  Receive Date: 20110324
  Receipt Date: 20100915
  Transmission Date: 20110831
  Serious: Yes (Hospitalization)
  Sender: FDA-Public Use
  Company Number: US-BAYER-201030672NA

PATIENT
  Sex: Female
  Weight: 82 kg

DRUGS (10)
  1. AMBIEN [Concomitant]
  2. RETIN-A [Concomitant]
  3. YASMIN [Suspect]
     Indication: PREMENSTRUAL SYNDROME
     Dosage: UNK UNK, UNK
     Route: 048
     Dates: start: 20050101, end: 20070101
  4. YASMIN [Suspect]
     Indication: CONTRACEPTION
  5. APRI [Concomitant]
  6. ULTRACET [Concomitant]
  7. YAZ [Suspect]
     Indication: ACNE
     Dosage: UNK UNK, UNK
     Route: 048
     Dates: start: 20050101, end: 20070101
  8. YAZ [Suspect]
     Indication: PREMENSTRUAL SYNDROME
  9. DIPHTERIA TETANUS ADS IMPFSTOFF [Concomitant]
  10. YAZ [Suspect]
     Indication: CONTRACEPTION

REACTIONS (8)
  - NAUSEA [None]
  - DEEP VEIN THROMBOSIS [None]
  - CHOLECYSTITIS CHRONIC [None]
  - GALLBLADDER CHOLESTEROLOSIS [None]
  - CHOLELITHIASIS [None]
  - BILIARY COLIC [None]
  - PULMONARY EMBOLISM [None]
  - VOMITING [None]
